FAERS Safety Report 23278724 (Version 1)
Quarter: 2023Q4

REPORT INFORMATION
  Report Type: Spontaneous
  Country: US (occurrence: US)
  Receive Date: 20231208
  Receipt Date: 20231208
  Transmission Date: 20240110
  Serious: No
  Sender: FDA-Public Use
  Company Number: US-NOVOPROD-1016122

PATIENT
  Age: 71 Year
  Sex: Male

DRUGS (1)
  1. NOVOLIN R [Suspect]
     Active Substance: INSULIN HUMAN
     Indication: Product used for unknown indication
     Dosage: UNK
     Route: 058
     Dates: start: 202209

REACTIONS (5)
  - Skin exfoliation [Unknown]
  - Condition aggravated [Unknown]
  - Rash [Unknown]
  - Drug hypersensitivity [Unknown]
  - Oedema [Unknown]

NARRATIVE: CASE EVENT DATE: 20220901
